FAERS Safety Report 5303130-5 (Version None)
Quarter: 2007Q2

REPORT INFORMATION
  Report Type: 
  Country: None (occurrence: None)
  Receive Date: 20070420
  Receipt Date: 20070409
  Transmission Date: 20071010
  Serious: Yes (Hospitalization)
  Sender: FDA-Public Use
  Company Number: PHEH2007US04689

PATIENT
  Age: 43 Year
  Sex: Female

DRUGS (1)
  1. ZELNORM [Suspect]
     Indication: IRRITABLE BOWEL SYNDROME
     Dosage: 6 MG, BID
     Dates: start: 20060901, end: 20070330

REACTIONS (4)
  - ATRIAL TACHYCARDIA [None]
  - DIZZINESS [None]
  - HEART RATE INCREASED [None]
  - PALPITATIONS [None]
